FAERS Safety Report 18683545 (Version 1)
Quarter: 2020Q4

REPORT INFORMATION
  Report Type: Spontaneous
  Country: CA (occurrence: CA)
  Receive Date: 20201230
  Receipt Date: 20201230
  Transmission Date: 20210114
  Serious: Yes (Hospitalization)
  Sender: FDA-Public Use
  Company Number: CA-PFIZER INC-2020515982

PATIENT
  Age: 78 Year
  Sex: Female
  Weight: 58.96 kg

DRUGS (7)
  1. CRESTOR [Concomitant]
     Active Substance: ROSUVASTATIN CALCIUM
  2. TYLENOL [Concomitant]
     Active Substance: ACETAMINOPHEN
  3. ASPIRIN [ACETYLSALICYLIC ACID] [Concomitant]
     Active Substance: ASPIRIN
  4. CELEBREX [Suspect]
     Active Substance: CELECOXIB
     Indication: BACK PAIN
     Dosage: 100 MG, AS NEEDED
  5. DONEPEZIL. [Concomitant]
     Active Substance: DONEPEZIL
  6. ASA [Suspect]
     Active Substance: ASPIRIN
     Indication: CORONARY ARTERIAL STENT INSERTION
     Dosage: 81 MG, 1X/DAY
     Route: 048
  7. SYNTHROID [Concomitant]
     Active Substance: LEVOTHYROXINE SODIUM

REACTIONS (4)
  - Occult blood positive [Recovered/Resolved]
  - Faeces discoloured [Recovered/Resolved]
  - Dyspnoea [Recovered/Resolved]
  - Haemoglobin abnormal [Recovered/Resolved]
